FAERS Safety Report 7909036-7 (Version None)
Quarter: 2011Q4

REPORT INFORMATION
  Report Type: 
  Country: None (occurrence: None)
  Receive Date: 20111111
  Receipt Date: 20111101
  Transmission Date: 20120403
  Serious: Yes (Hospitalization)
  Sender: FDA-Public Use
  Company Number: US-BAYER-2011-041376

PATIENT
  Age: 24 Year
  Sex: Female
  Weight: 85.261 kg

DRUGS (8)
  1. AVELOX [Concomitant]
     Dosage: 400 MG, UNK
     Route: 048
     Dates: start: 20110118
  2. CEFDINIR [Concomitant]
     Dosage: 300 MG, UNK
     Route: 048
     Dates: start: 20101219
  3. YAZ [Suspect]
     Indication: CONTRACEPTION
     Dosage: UNK
     Dates: start: 20060101, end: 20110101
  4. AZITHROMYCIN [Concomitant]
     Dosage: 250 MG, UNK
     Route: 048
     Dates: start: 20101215
  5. METHYLPREDNISOLONE ACETATE [Concomitant]
     Dosage: 4 MG, UNK
     Route: 048
     Dates: start: 20091101, end: 20110118
  6. PROAIR HFA [Concomitant]
     Dosage: UNK
     Dates: start: 20101201
  7. PREDNISONE TAB [Concomitant]
     Dosage: 5 MG, UNK
     Route: 048
     Dates: start: 20101219
  8. LEXAPRO [Concomitant]
     Dosage: 20 MG, UNK
     Dates: start: 20091103, end: 20091120

REACTIONS (6)
  - PULMONARY EMBOLISM [None]
  - ANXIETY [None]
  - PAIN [None]
  - DEPRESSION [None]
  - INJURY [None]
  - DYSPNOEA [None]
